FAERS Safety Report 6284113-8 (Version None)
Quarter: 2009Q3

REPORT INFORMATION
  Report Type: 
  Country: None (occurrence: None)
  Receive Date: 20090722
  Receipt Date: 20090708
  Transmission Date: 20100115
  Serious: Yes (Other)
  Sender: FDA-Public Use
  Company Number: 2009-200461-NL

PATIENT
  Sex: Female

DRUGS (1)
  1. NUVARING [Suspect]

REACTIONS (3)
  - DEEP VEIN THROMBOSIS [None]
  - ISCHAEMIC STROKE [None]
  - PULMONARY EMBOLISM [None]
